FAERS Safety Report 9334785 (Version 1)
Quarter: 2013Q2

REPORT INFORMATION
  Report Type: Spontaneous
  Country: US (occurrence: US)
  Receive Date: 20130606
  Receipt Date: 20130606
  Transmission Date: 20140414
  Serious: No
  Sender: FDA-Public Use
  Company Number: US-AMGEN-USASP2013025132

PATIENT
  Age: 62 Year
  Sex: Female

DRUGS (4)
  1. PROLIA [Suspect]
     Indication: OSTEOPOROSIS POSTMENOPAUSAL
     Dosage: 60 MG, UNK
     Dates: start: 201211
  2. CALCIUM [Concomitant]
  3. LIPITOR [Concomitant]
     Dates: end: 2013
  4. ANTIHYPERTENSIVES [Concomitant]

REACTIONS (4)
  - Dry eye [Unknown]
  - Nasal dryness [Unknown]
  - Dry throat [Unknown]
  - Eczema [Not Recovered/Not Resolved]
